FAERS Safety Report 14436447 (Version 1)
Quarter: 2018Q1

REPORT INFORMATION
  Report Type: Spontaneous
  Country: US (occurrence: US)
  Receive Date: 20180125
  Receipt Date: 20180125
  Transmission Date: 20180509
  Serious: No
  Sender: FDA-Public Use
  Company Number: US-UNITED THERAPEUTICS-UNT-2017-010871

PATIENT
  Sex: Female
  Weight: 125.62 kg

DRUGS (4)
  1. REMODULIN [Suspect]
     Active Substance: TREPROSTINIL
     Indication: PULMONARY HYPERTENSION
     Dosage: 0.016 ?G/KG, CONTINUING
     Route: 058
     Dates: start: 20170417, end: 20170913
  2. REMODULIN [Suspect]
     Active Substance: TREPROSTINIL
     Dosage: UNK
     Route: 058
  3. REMODULIN [Suspect]
     Active Substance: TREPROSTINIL
     Dosage: 0.008 ?G/KG, CONTINUING
     Route: 058
  4. REMODULIN [Suspect]
     Active Substance: TREPROSTINIL
     Dosage: 0.020 ?G/KG, CONTINUING
     Route: 058

REACTIONS (11)
  - Thyroid disorder [Unknown]
  - Throat irritation [Not Recovered/Not Resolved]
  - Gastrooesophageal reflux disease [Unknown]
  - Therapy non-responder [Unknown]
  - Headache [Unknown]
  - Nausea [Unknown]
  - Productive cough [Unknown]
  - Increased upper airway secretion [Unknown]
  - Paraesthesia [Unknown]
  - Diarrhoea [Unknown]
  - Drug intolerance [Unknown]

NARRATIVE: CASE EVENT DATE: 2017
